FAERS Safety Report 8287975-8 (Version None)
Quarter: 2012Q2

REPORT INFORMATION
  Report Type: 
  Country: None (occurrence: None)
  Receive Date: 20120416
  Receipt Date: 20120411
  Transmission Date: 20120825
  Serious: Yes (Hospitalization, Other)
  Sender: FDA-Public Use
  Company Number: JP-B.I. PHARMACEUTICALS,INC./RIDGEFIELD-2012-BP-03409NB

PATIENT
  Age: 85 Year
  Sex: Female

DRUGS (4)
  1. DAI-KENCHU-TO [Concomitant]
     Route: 048
  2. ARICEPT [Concomitant]
     Indication: DEMENTIA
     Dosage: 10 MG
     Route: 048
  3. NIFEDIPINE [Concomitant]
     Indication: HYPERTENSION
     Dosage: 40 MG
     Route: 048
  4. MICARDIS [Suspect]
     Indication: HYPERTENSION
     Dosage: 40 MG
     Route: 048

REACTIONS (3)
  - ALTERED STATE OF CONSCIOUSNESS [None]
  - HYPOGLYCAEMIA [None]
  - ATRIOVENTRICULAR BLOCK FIRST DEGREE [None]
